FAERS Safety Report 7458848-5 (Version None)
Quarter: 2011Q2

REPORT INFORMATION
  Report Type: 
  Country: None (occurrence: None)
  Receive Date: 20110504
  Receipt Date: 20110503
  Transmission Date: 20111010
  Serious: Yes (Death, Hospitalization)
  Sender: FDA-Public Use
  Company Number: US-B.I. PHARMACEUTICALS,INC./RIDGEFIELD-2011-BP-12311BP

PATIENT
  Age: 95 Year
  Sex: Male

DRUGS (3)
  1. ASPIRIN [Suspect]
  2. PRADAXA [Suspect]
     Route: 048
  3. PLAVIX [Suspect]

REACTIONS (2)
  - SUBDURAL HAEMATOMA [None]
  - DEATH [None]
